FAERS Safety Report 4767635-8 (Version None)
Quarter: 2005Q3

REPORT INFORMATION
  Report Type: 
  Country: None (occurrence: None)
  Receive Date: 20050909
  Receipt Date: 20050824
  Transmission Date: 20060218
  Serious: Yes (Other)
  Sender: FDA-Public Use
  Company Number: 2005120168

PATIENT
  Age: 89 Year
  Sex: Male

DRUGS (1)
  1. MACUGEN [Suspect]
     Indication: EYE HAEMORRHAGE
     Dosage: INTRAVITREOUS
     Dates: start: 20050712

REACTIONS (2)
  - RETINAL TEAR [None]
  - VISUAL ACUITY REDUCED [None]
